FAERS Safety Report 21477903 (Version 1)
Quarter: 2022Q4

REPORT INFORMATION
  Report Type: Report from Study
  Country: US (occurrence: US)
  Receive Date: 20221019
  Receipt Date: 20221019
  Transmission Date: 20230112
  Serious: Yes (Other)
  Sender: FDA-Public Use
  Company Number: US-BoehringerIngelheim-2021-BI-136931

PATIENT
  Age: 84 Year
  Sex: Male

DRUGS (1)
  1. OFEV [Suspect]
     Active Substance: NINTEDANIB
     Indication: Idiopathic pulmonary fibrosis
     Dosage: LOT NUMBER: 102654
     Route: 048
     Dates: start: 20211026

REACTIONS (23)
  - Idiopathic pulmonary fibrosis [Unknown]
  - Weight decreased [Unknown]
  - Diarrhoea [Unknown]
  - Malaise [Unknown]
  - Paranasal sinus hypersecretion [Unknown]
  - Cough [Unknown]
  - Constipation [Unknown]
  - Muscular weakness [Unknown]
  - Gastrointestinal motility disorder [Unknown]
  - Pain in extremity [Unknown]
  - Gait disturbance [Unknown]
  - Tooth restoration [Unknown]
  - Back pain [Unknown]
  - Decreased appetite [Unknown]
  - Flatulence [Unknown]
  - Dehydration [Unknown]
  - Pain [Unknown]
  - Noninfective gingivitis [Unknown]
  - Stenosis [Unknown]
  - Abdominal pain [Unknown]
  - Dizziness [Unknown]
  - Urinary retention [Unknown]
  - Pain in extremity [Unknown]

NARRATIVE: CASE EVENT DATE: 20211001
